FAERS Safety Report 5374567-3 (Version None)
Quarter: 2007Q2

REPORT INFORMATION
  Report Type: 
  Country: None (occurrence: None)
  Receive Date: 20070629
  Receipt Date: 20070618
  Transmission Date: 20071010
  Serious: Yes (Death, Life-Threatening, Hospitalization)
  Sender: FDA-Public Use
  Company Number: FR-AMGEN-US222489

PATIENT
  Age: 76 Year
  Sex: Female
  Weight: 55 kg

DRUGS (7)
  1. ENBREL [Suspect]
     Indication: RHEUMATOID ARTHRITIS
     Route: 058
     Dates: start: 20060824, end: 20070316
  2. CORTANCYL [Suspect]
     Route: 048
     Dates: start: 20070316, end: 20070318
  3. NEXEN [Concomitant]
     Route: 048
     Dates: start: 20061119, end: 20070316
  4. PYOSTACINE [Concomitant]
     Indication: LOCALISED INFECTION
     Dosage: 2 G TOTAL DAILY
     Route: 048
  5. TRIATEC [Concomitant]
     Route: 048
  6. DIFFU K [Concomitant]
     Route: 048
  7. TRAMADOL HCL [Concomitant]
     Dosage: UNKNOWN

REACTIONS (32)
  - ALTERED STATE OF CONSCIOUSNESS [None]
  - ATELECTASIS [None]
  - BLOOD PRESSURE SYSTOLIC DECREASED [None]
  - CARDIAC PERFORATION [None]
  - CHORDAE TENDINAE RUPTURE [None]
  - COMPUTERISED TOMOGRAM ABNORMAL [None]
  - CONDITION AGGRAVATED [None]
  - CONFUSIONAL STATE [None]
  - DEHYDRATION [None]
  - DISORIENTATION [None]
  - ENDOCARDITIS [None]
  - GENERAL PHYSICAL HEALTH DETERIORATION [None]
  - HEART RATE INCREASED [None]
  - INTERVERTEBRAL DISCITIS [None]
  - KLEBSIELLA BACTERAEMIA [None]
  - MENINGITIS STAPHYLOCOCCAL [None]
  - MITRAL VALVE INCOMPETENCE [None]
  - MITRAL VALVE PROLAPSE [None]
  - MUSCLE DISORDER [None]
  - NUCLEAR MAGNETIC RESONANCE IMAGING ABNORMAL [None]
  - PELVIC FLUID COLLECTION [None]
  - PERICARDIAL EFFUSION [None]
  - PNEUMONIA [None]
  - PNEUMONIA ASPIRATION [None]
  - QUADRIPARESIS [None]
  - RESPIRATORY DISTRESS [None]
  - RHEUMATOID ARTHRITIS [None]
  - SEPTIC SHOCK [None]
  - SOMNOLENCE [None]
  - STAPHYLOCOCCAL BACTERAEMIA [None]
  - STAPHYLOCOCCAL SKIN INFECTION [None]
  - UNRESPONSIVE TO STIMULI [None]
